FAERS Safety Report 22394825 (Version 1)
Quarter: 2023Q2

REPORT INFORMATION
  Report Type: Spontaneous
  Country: US (occurrence: None)
  Receive Date: 20230531
  Receipt Date: 20230531
  Transmission Date: 20230722
  Serious: Yes (Hospitalization)
  Sender: FDA-Public Use
  Company Number: None

PATIENT
  Sex: Male

DRUGS (1)
  1. PROGRAF [Suspect]
     Active Substance: TACROLIMUS
     Dosage: FREQUENCY : TWICE A DAY;?
     Route: 048

REACTIONS (8)
  - Dizziness [None]
  - Norovirus infection [None]
  - Nausea [None]
  - Hepatic enzyme increased [None]
  - Haemorrhage [None]
  - Abdominal pain [None]
  - Liver transplant [None]
  - Headache [None]
